FAERS Safety Report 12934098 (Version 1)
Quarter: 2016Q4

REPORT INFORMATION
  Report Type: Spontaneous
  Country: US (occurrence: US)
  Receive Date: 20161111
  Receipt Date: 20161111
  Transmission Date: 20170207
  Serious: Yes (Hospitalization, Other)
  Sender: FDA-Public Use
  Company Number: US-ASTELLAS-2016US044466

PATIENT
  Age: 2 Year
  Sex: Female

DRUGS (2)
  1. TACROLIMUS. [Suspect]
     Active Substance: TACROLIMUS
     Indication: BONE MARROW TRANSPLANT
     Dosage: UNK UNK, UNKNOWN FREQ.
     Route: 065
  2. MYCOPHENOLATE MOFETIL. [Concomitant]
     Active Substance: MYCOPHENOLATE MOFETIL
     Indication: BONE MARROW TRANSPLANT
     Dosage: UNK UNK, UNKNOWN FREQ.
     Route: 065

REACTIONS (7)
  - Off label use [Unknown]
  - Post transplant distal limb syndrome [Recovering/Resolving]
  - Immunosuppressant drug level increased [Recovered/Resolved]
  - Bone disorder [Unknown]
  - Escherichia sepsis [Unknown]
  - Venoocclusive liver disease [Unknown]
  - Cytomegalovirus infection [Unknown]
